FAERS Safety Report 5963476-4 (Version None)
Quarter: 2008Q4

REPORT INFORMATION
  Report Type: 
  Country: None (occurrence: None)
  Receive Date: 20081124
  Receipt Date: 20081114
  Transmission Date: 20090506
  Serious: Yes (Other)
  Sender: FDA-Public Use
  Company Number: AU-AMGEN-QUU316445

PATIENT
  Sex: Male

DRUGS (1)
  1. NEUPOGEN [Suspect]
     Indication: NEUTROPENIA
     Dates: start: 20080901, end: 20081001

REACTIONS (4)
  - CHILLS [None]
  - HEADACHE [None]
  - MUSCULOSKELETAL STIFFNESS [None]
  - NEUTROPHIL COUNT DECREASED [None]
